FAERS Safety Report 5622286-8 (Version None)
Quarter: 2008Q1

REPORT INFORMATION
  Report Type: 
  Country: None (occurrence: None)
  Receive Date: 20080206
  Receipt Date: 20080123
  Transmission Date: 20080703
  Serious: Yes (Other)
  Sender: FDA-Public Use
  Company Number: A-CH2008-19273

PATIENT
  Age: 45 Year
  Sex: Male

DRUGS (7)
  1. TRACLEER [Suspect]
     Indication: PULMONARY HYPERTENSION
     Dosage: 125 MG, BID, ORAL; 62.5 MG, BID, ORAL
     Route: 048
     Dates: start: 20040701
  2. VIAGRA [Concomitant]
  3. ALDACTONE [Concomitant]
  4. LASIX [Concomitant]
  5. LANOXIN [Concomitant]
  6. POTASSIUM CHLORIDE [Concomitant]
  7. CALCIUM CARBONATE (CALCIUM CARBONATE) [Concomitant]

REACTIONS (1)
  - HEPATIC CIRRHOSIS [None]
